FAERS Safety Report 4825340-3 (Version None)
Quarter: 2005Q4

REPORT INFORMATION
  Report Type: 
  Country: None (occurrence: None)
  Receive Date: 20051111
  Receipt Date: 20051102
  Transmission Date: 20060501
  Serious: Yes (Life-Threatening)
  Sender: FDA-Public Use
  Company Number: EMADSS2001005646

PATIENT
  Sex: Male

DRUGS (1)
  1. DAKTARIN [Suspect]
     Route: 048
     Dates: start: 20010808, end: 20010808

REACTIONS (3)
  - APNOEA [None]
  - CYANOSIS [None]
  - OBSTRUCTIVE AIRWAYS DISORDER [None]
